FAERS Safety Report 7676868 (Version 3)
Quarter: 2013Q3

REPORT INFORMATION
  Report Type: Spontaneous
  Country: US (occurrence: US)
  Receive Date: 20101119
  Receipt Date: 20130807
  Transmission Date: 20140515
  Serious: Yes (Other)
  Sender: FDA-Public Use
  Company Number: US-US-EMD SERONO, INC.-7002449

PATIENT
  Sex: Female
  Weight: 78 kg

DRUGS (9)
  1. REBIF [Suspect]
     Indication: MULTIPLE SCLEROSIS
     Route: 058
     Dates: start: 200703
  2. KEPPRA [Concomitant]
     Indication: CONVULSION
  3. KEPPRA [Concomitant]
     Indication: EPILEPSY
  4. LAMICTAL [Concomitant]
     Indication: EPILEPSY
  5. LAMICTAL [Concomitant]
     Indication: CONVULSION
  6. KEPPRA [Concomitant]
     Indication: EPILEPSY
  7. KEPPRA [Concomitant]
     Indication: CONVULSION
  8. NAPROXEN [Concomitant]
     Indication: PAIN
  9. KLONOPIN [Concomitant]
     Indication: ANXIETY

REACTIONS (4)
  - Osteoarthritis [Not Recovered/Not Resolved]
  - Cartilage injury [Recovered/Resolved]
  - Visual acuity reduced [Not Recovered/Not Resolved]
  - Injection site bruising [Unknown]
